FAERS Safety Report 4583540-4 (Version None)
Quarter: 2005Q1

REPORT INFORMATION
  Report Type: 
  Country: None (occurrence: None)
  Receive Date: 20050211
  Receipt Date: 20050201
  Transmission Date: 20050727
  Serious: Yes (Hospitalization, Disabling)
  Sender: FDA-Public Use
  Company Number: 2005UW01133

PATIENT
  Age: 79 Year
  Sex: Female
  Weight: 140 kg

DRUGS (6)
  1. SELOZOK [Suspect]
     Indication: HYPERTENSION
     Dates: start: 20050114
  2. PURAN T4 [Concomitant]
  3. INSULIN [Concomitant]
  4. ENALAPRIL [Concomitant]
  5. FUROSEMIDA [Concomitant]
  6. METOPROLOL TARTRATE [Concomitant]

REACTIONS (3)
  - FALL [None]
  - HIP FRACTURE [None]
  - MONOPLEGIA [None]
